FAERS Safety Report 8507260-6 (Version None)
Quarter: 2012Q3

REPORT INFORMATION
  Report Type: 
  Country: None (occurrence: None)
  Receive Date: 20120712
  Receipt Date: 20120629
  Transmission Date: 20120928
  Serious: Yes (Other)
  Sender: FDA-Public Use
  Company Number: US-ROCHE-1057997

PATIENT
  Sex: Male
  Weight: 99.88 kg

DRUGS (1)
  1. ACCUTANE [Suspect]
     Indication: ACNE
     Dates: start: 19980101, end: 19990101

REACTIONS (8)
  - ARTHRALGIA [None]
  - IRRITABLE BOWEL SYNDROME [None]
  - FISTULA [None]
  - TENDONITIS [None]
  - PHARYNGEAL ULCERATION [None]
  - ARTHRITIS [None]
  - CROHN'S DISEASE [None]
  - DEPRESSION [None]
